FAERS Safety Report 22231521 (Version 1)
Quarter: 2023Q2

REPORT INFORMATION
  Report Type: Report from Study
  Country: IT (occurrence: IT)
  Receive Date: 20230420
  Receipt Date: 20230420
  Transmission Date: 20230722
  Serious: Yes (Other)
  Sender: FDA-Public Use
  Company Number: IT-TAKEDA-2023TUS039544

PATIENT
  Age: 94 Year
  Sex: Female

DRUGS (1)
  1. ANTI-INHIBITOR COAGULANT COMPLEX [Suspect]
     Active Substance: ANTI-INHIBITOR COAGULANT COMPLEX
     Indication: Haemophilia
     Dosage: 3000 INTERNATIONAL UNIT
     Route: 042

REACTIONS (6)
  - Cardiac dysfunction [Recovering/Resolving]
  - Dehydration [Recovering/Resolving]
  - Dysphagia [Recovering/Resolving]
  - Respiratory disorder [Recovering/Resolving]
  - Pain [Recovering/Resolving]
  - Contusion [Recovering/Resolving]

NARRATIVE: CASE EVENT DATE: 20230415
